FAERS Safety Report 9787948 (Version 2)
Quarter: 2013Q4

REPORT INFORMATION
  Report Type: Spontaneous
  Country: SE (occurrence: SE)
  Receive Date: 20131230
  Receipt Date: 20131230
  Transmission Date: 20140711
  Serious: Yes (Other)
  Sender: FDA-Public Use
  Company Number: SE-ASTELLAS-2013EU010707

PATIENT
  Sex: Female

DRUGS (2)
  1. BETMIGA [Suspect]
     Indication: NEUROGENIC BLADDER
     Dosage: 50 MG, UNKNOWN/D
     Route: 048
     Dates: start: 2013, end: 20131124
  2. CRESTOR [Concomitant]
     Dosage: UNK
     Route: 065

REACTIONS (2)
  - Eyelid oedema [Recovered/Resolved]
  - Paraesthesia oral [Recovered/Resolved]
